FAERS Safety Report 5166618-6 (Version None)
Quarter: 2006Q4

REPORT INFORMATION
  Report Type: 
  Country: None (occurrence: None)
  Receive Date: 20061130
  Receipt Date: 20061130
  Transmission Date: 20070319
  Serious: Yes (Other)
  Sender: FDA-Public Use
  Company Number: None

PATIENT
  Age: 30 Year
  Sex: Female
  Weight: 58.9676 kg

DRUGS (1)
  1. ALESSE [Suspect]
     Indication: ORAL CONTRACEPTION
     Dosage: 0.1 MG LEVONORGESTREL / 0.02     DAILY   PO
     Route: 048
     Dates: start: 20061127, end: 20061129

REACTIONS (5)
  - DRY EYE [None]
  - EYE PRURITUS [None]
  - PRURITUS GENERALISED [None]
  - RASH MACULAR [None]
  - URTICARIA [None]
